FAERS Safety Report 6722113-1 (Version None)
Quarter: 2010Q2

REPORT INFORMATION
  Report Type: 
  Country: None (occurrence: None)
  Receive Date: 20100512
  Receipt Date: 20100507
  Transmission Date: 20101027
  Serious: Yes (Other)
  Sender: FDA-Public Use
  Company Number: US-RB-006449-10

PATIENT
  Age: 48 Year
  Sex: Female

DRUGS (4)
  1. SUBOXONE [Suspect]
     Dosage: DOSING DETAILS UNKNOWN
     Route: 065
     Dates: start: 20080101
  2. KEPPRA [Concomitant]
     Route: 065
  3. LORAZEPAM [Concomitant]
     Indication: INSOMNIA
     Dosage: DOSING DETAILS UNKNOWN
     Route: 065
  4. LORAZEPAM [Concomitant]
     Indication: ANXIETY
     Dosage: DOSING DETAILS UNKNOWN
     Route: 065

REACTIONS (2)
  - CONVULSION [None]
  - INSOMNIA [None]
